FAERS Safety Report 4429468-1 (Version None)
Quarter: 2004Q3

REPORT INFORMATION
  Report Type: 
  Country: None (occurrence: None)
  Receive Date: 20040817
  Receipt Date: 20040817
  Transmission Date: 20050211
  Serious: Yes (Other)
  Sender: FDA-Public Use
  Company Number: None

PATIENT
  Age: 69 Year
  Sex: Female
  Weight: 81.6 kg

DRUGS (1)
  1. VANCOMYCIN [Suspect]
     Indication: URINARY TRACT INFECTION
     Dosage: 750MG  IV Q24 HOURS
     Route: 042
     Dates: start: 20040809

REACTIONS (2)
  - PRURITUS [None]
  - URTICARIA [None]
